FAERS Safety Report 25979858 (Version 2)
Quarter: 2025Q4

REPORT INFORMATION
  Report Type: Spontaneous
  Country: US (occurrence: US)
  Receive Date: 20251030
  Receipt Date: 20251113
  Transmission Date: 20260118
  Serious: No
  Sender: PFIZER
  Company Number: US-PFIZER INC-PV202500127519

PATIENT
  Age: 60 Year
  Sex: Female

DRUGS (1)
  1. IBRANCE [Suspect]
     Active Substance: PALBOCICLIB
     Indication: Breast cancer female
     Dosage: UNK

REACTIONS (5)
  - Fatigue [Unknown]
  - Oral pain [Unknown]
  - Gastrooesophageal reflux disease [Unknown]
  - Diarrhoea [Recovered/Resolved]
  - Taste disorder [Unknown]
